FAERS Safety Report 25676673 (Version 1)
Quarter: 2025Q3

REPORT INFORMATION
  Report Type: Spontaneous
  Country: US (occurrence: None)
  Receive Date: 20250813
  Receipt Date: 20250813
  Transmission Date: 20251021
  Serious: Yes (Death)
  Sender: FDA-CTU
  Company Number: None

PATIENT
  Age: 74 Year
  Sex: Male

DRUGS (2)
  1. MYCOPHENOLATE MOFETIL [Suspect]
     Active Substance: MYCOPHENOLATE MOFETIL
     Indication: Pemphigoid
     Dosage: FREQUENCY : TWICE A DAY;?
     Route: 048
  2. ACTHAR [Suspect]
     Active Substance: CORTICOTROPIN

REACTIONS (1)
  - Septic shock [None]

NARRATIVE: CASE EVENT DATE: 20250723
